FAERS Safety Report 4279746-4 (Version None)
Quarter: 2004Q1

REPORT INFORMATION
  Report Type: 
  Country: None (occurrence: None)
  Receive Date: 20040127
  Receipt Date: 20040116
  Transmission Date: 20041129
  Serious: Yes (Hospitalization, Other)
  Sender: FDA-Public Use
  Company Number: WAES 0401USA01502

PATIENT
  Sex: Female

DRUGS (2)
  1. COSOPT [Suspect]
     Route: 047
  2. COSOPT [Suspect]
     Route: 047

REACTIONS (4)
  - BRADYCARDIA [None]
  - GLAUCOMA [None]
  - INTRAOCULAR PRESSURE INCREASED [None]
  - SYNCOPE [None]
